FAERS Safety Report 8467889-0 (Version None)
Quarter: 2012Q2

REPORT INFORMATION
  Report Type: 
  Country: None (occurrence: None)
  Receive Date: 20120626
  Receipt Date: 20120618
  Transmission Date: 20120825
  Serious: Yes (Hospitalization)
  Sender: FDA-Public Use
  Company Number: SE-ROCHE-1080101

PATIENT

DRUGS (3)
  1. OXALIPLATIN [Suspect]
     Indication: COLON CANCER
     Dosage: LAST DOSE PRIOR TO SAE: 07/JUN/2012
     Dates: start: 20120403
  2. XELODA [Suspect]
     Indication: COLON CANCER
     Dosage: LAST DOSE PRIOR TO SAE: 07/JUN/2012
     Dates: start: 20120403
  3. AVASTIN [Suspect]
     Indication: COLON CANCER
     Dosage: LAST DOSE PRIOR TO SAE: 07/JUN/2012
     Dates: start: 20120403

REACTIONS (1)
  - TRANSIENT ISCHAEMIC ATTACK [None]
